FAERS Safety Report 17546963 (Version 2)
Quarter: 2020Q1

REPORT INFORMATION
  Report Type: Spontaneous
  Country: PK (occurrence: PK)
  Receive Date: 20200316
  Receipt Date: 20200327
  Transmission Date: 20200409
  Serious: Yes (Death, Hospitalization)
  Sender: FDA-Public Use
  Company Number: PK-NOVOPROD-718224

PATIENT
  Age: 60 Year
  Sex: Female
  Weight: 80 kg

DRUGS (2)
  1. NOVOMIX 30 FLEXPEN [Suspect]
     Active Substance: INSULIN ASPART
     Indication: TYPE 2 DIABETES MELLITUS
     Dosage: 52 IU, QD
     Route: 058
     Dates: start: 20180305
  2. DAPA [DAPAGLIFLOZIN PROPANEDIOL MONOHYDRATE] [Concomitant]
     Dosage: MORE THAN ONE YEAR OD

REACTIONS (1)
  - Myocardial infarction [Fatal]

NARRATIVE: CASE EVENT DATE: 20200126
